FAERS Safety Report 9641571 (Version 1)
Quarter: 2013Q4

REPORT INFORMATION
  Report Type: Spontaneous
  Country: FR (occurrence: FR)
  Receive Date: 20131023
  Receipt Date: 20131023
  Transmission Date: 20140711
  Serious: Yes (Hospitalization)
  Sender: FDA-Public Use
  Company Number: FR-BAYER-2013-128734

PATIENT
  Age: 35 Year
  Sex: Female

DRUGS (2)
  1. ACETYLSALICYLIC ACID({=100 MG) [Suspect]
     Indication: ANTICOAGULANT THERAPY
  2. FLUINDIONE [Suspect]
     Indication: ANTICOAGULANT THERAPY

REACTIONS (2)
  - Haemorrhagic stroke [Recovered/Resolved]
  - Hydrocephalus [None]
